FAERS Safety Report 5897959-2 (Version None)
Quarter: 2008Q3

REPORT INFORMATION
  Report Type: 
  Country: None (occurrence: None)
  Receive Date: 20080925
  Receipt Date: 20080925
  Transmission Date: 20090109
  Serious: Yes (Hospitalization)
  Sender: FDA-Public Use
  Company Number: B0529517A

PATIENT
  Age: 9 Year
  Sex: Female

DRUGS (3)
  1. SAWACILLIN [Suspect]
     Indication: STREPTOCOCCAL INFECTION
     Dosage: 250MG THREE TIMES PER DAY
     Route: 048
     Dates: start: 20080701, end: 20080702
  2. VICCILLIN [Suspect]
     Indication: STREPTOCOCCAL INFECTION
     Dosage: 1000MG THREE TIMES PER DAY
     Route: 042
     Dates: start: 20080624, end: 20080630
  3. PERIACTIN [Concomitant]
     Dosage: 2MG THREE TIMES PER DAY
     Route: 065
     Dates: start: 20080702

REACTIONS (4)
  - PRURITUS GENERALISED [None]
  - RASH [None]
  - RASH GENERALISED [None]
  - URTICARIA [None]
